FAERS Safety Report 5757017-4 (Version None)
Quarter: 2008Q2

REPORT INFORMATION
  Report Type: 
  Country: None (occurrence: None)
  Receive Date: 20080603
  Receipt Date: 20080522
  Transmission Date: 20081010
  Serious: Yes (Disabling, Other)
  Sender: FDA-Public Use
  Company Number: GB-VALEANT-2008VX001181

PATIENT
  Age: 42 Year
  Sex: Male

DRUGS (6)
  1. NABILONE [Suspect]
     Route: 065
  2. KETAMINE HCL [Suspect]
     Route: 065
     Dates: start: 20030101
  3. ISTIN [Concomitant]
     Route: 065
  4. RAMIPRIL [Concomitant]
     Route: 065
  5. TRAMADOL HCL [Concomitant]
     Route: 065
  6. SIMVASTATIN [Concomitant]
     Route: 065

REACTIONS (2)
  - CONVULSION [None]
  - HEAD INJURY [None]
